FAERS Safety Report 20966368 (Version 1)
Quarter: 2022Q2

REPORT INFORMATION
  Report Type: Spontaneous
  Country: FI (occurrence: FI)
  Receive Date: 20220616
  Receipt Date: 20220616
  Transmission Date: 20220721
  Serious: Yes (Hospitalization)
  Sender: FDA-Public Use
  Company Number: None

PATIENT
  Age: 26 Year
  Sex: Male

DRUGS (8)
  1. DISULFIRAM [Interacting]
     Active Substance: DISULFIRAM
     Indication: Alcoholism
     Dosage: 200 MILLIGRAM DAILY; 200,MG,DAILY,DURATION 56DAYS
     Dates: start: 20200911, end: 20201105
  2. CLOZAPINE [Interacting]
     Active Substance: CLOZAPINE
     Indication: Schizophrenia
     Dosage: 600 MILLIGRAM DAILY; 600,MG,DAILY
     Route: 048
     Dates: start: 20200717
  3. ARIPIPRAZOLE [Concomitant]
     Active Substance: ARIPIPRAZOLE
     Indication: Schizophrenia
     Dosage: 10 MILLIGRAM DAILY; 10,MG,DAILY,DURATION 4DAYS
     Dates: start: 20201026, end: 20201029
  4. OLANZAPINE [Concomitant]
     Active Substance: OLANZAPINE
     Indication: Schizophrenia
     Dosage: DURATION 11DAYS
     Dates: start: 20201019, end: 20201029
  5. BUPRENORPHINE [Concomitant]
     Active Substance: BUPRENORPHINE
     Indication: Drug dependence
     Dosage: 16 MILLIGRAM DAILY; 16,MG,DAILY, PROLONGED-RELEASE SOLUTION FOR INJECTION
     Dates: start: 20200618
  6. NIX [Concomitant]
     Active Substance: PERMETHRIN
     Dosage: DURATION 1DAYS
     Dates: start: 20201024, end: 20201024
  7. NICORETTE [Concomitant]
     Active Substance: NICOTINE
     Indication: Nicotine dependence
     Dates: start: 20200618
  8. IBUPROFEN [Concomitant]
     Active Substance: IBUPROFEN
     Indication: Pain
     Dosage: AS NECESSARY
     Dates: start: 20200618

REACTIONS (14)
  - Food interaction [Recovered/Resolved]
  - Neutrophil count increased [Recovered/Resolved]
  - Blood creatine phosphokinase increased [Recovered/Resolved]
  - C-reactive protein increased [Recovered/Resolved]
  - Pyrexia [Recovered/Resolved]
  - Mental impairment [Recovered/Resolved]
  - Troponin increased [Recovered/Resolved]
  - Myalgia [Recovered/Resolved]
  - Tachycardia [Recovered/Resolved]
  - Hallucination, auditory [Recovered/Resolved]
  - White blood cell count increased [Recovered/Resolved]
  - Toxicity to various agents [Recovered/Resolved]
  - Drug interaction [Recovered/Resolved]
  - Antipsychotic drug level increased [Recovered/Resolved]

NARRATIVE: CASE EVENT DATE: 20201025
